FAERS Safety Report 8541661-5 (Version None)
Quarter: 2012Q3

REPORT INFORMATION
  Report Type: 
  Country: None (occurrence: None)
  Receive Date: 20120726
  Receipt Date: 20120719
  Transmission Date: 20120928
  Serious: Yes (Other)
  Sender: FDA-Public Use
  Company Number: AU-GLAXOSMITHKLINE-B0807429A

PATIENT
  Age: 4 Year
  Sex: Male

DRUGS (3)
  1. AMOXICILLIN [Concomitant]
  2. VENTOLIN [Concomitant]
     Route: 055
  3. FLUTICASONE PROPIONATE [Suspect]
     Indication: PRODUCT USED FOR UNKNOWN INDICATION
     Route: 055
     Dates: start: 20120525, end: 20120525

REACTIONS (13)
  - RASH [None]
  - URTICARIA [None]
  - ANAPHYLACTIC REACTION [None]
  - DIARRHOEA [None]
  - DERMATITIS CONTACT [None]
  - LETHARGY [None]
  - PYREXIA [None]
  - MALAISE [None]
  - VOMITING [None]
  - PRURITUS [None]
  - FACE OEDEMA [None]
  - NAUSEA [None]
  - LARYNGEAL OEDEMA [None]
